FAERS Safety Report 17294377 (Version 2)
Quarter: 2020Q1

REPORT INFORMATION
  Report Type: Spontaneous
  Country: IN (occurrence: IN)
  Receive Date: 20200121
  Receipt Date: 20200129
  Transmission Date: 20200409
  Serious: Yes (Other)
  Sender: FDA-Public Use
  Company Number: IN-ROCHE-2463256

PATIENT
  Age: 45 Year
  Sex: Male

DRUGS (2)
  1. ACCENTRIX [Suspect]
     Active Substance: RANIBIZUMAB
     Indication: CYSTOID MACULAR OEDEMA
  2. ACCENTRIX [Suspect]
     Active Substance: RANIBIZUMAB
     Indication: RETINAL VEIN OCCLUSION
     Route: 050
     Dates: start: 20191004

REACTIONS (4)
  - Product contamination [Unknown]
  - Retinal vasculitis [Unknown]
  - Acanthamoeba infection [Unknown]
  - Endophthalmitis [Not Recovered/Not Resolved]

NARRATIVE: CASE EVENT DATE: 20191007
